FAERS Safety Report 6174464-X (Version None)
Quarter: 2009Q2

REPORT INFORMATION
  Report Type: 
  Country: None (occurrence: None)
  Receive Date: 20090430
  Receipt Date: 20080617
  Transmission Date: 20091009
  Serious: No
  Sender: FDA-Public Use
  Company Number: US-ASTRAZENECA-2008UW12196

PATIENT
  Age: 81 Year
  Sex: Male
  Weight: 74.4 kg

DRUGS (3)
  1. NEXIUM [Suspect]
     Indication: OESOPHAGEAL DISORDER
     Route: 048
     Dates: start: 20080616
  2. TENORETIC 100 [Concomitant]
     Route: 048
  3. UROXATRAL [Concomitant]

REACTIONS (2)
  - CHEST DISCOMFORT [None]
  - DRY MOUTH [None]
